FAERS Safety Report 4943974-2 (Version None)
Quarter: 2006Q1

REPORT INFORMATION
  Report Type: 
  Country: None (occurrence: None)
  Receive Date: 20060313
  Receipt Date: 20060313
  Transmission Date: 20060701
  Serious: Yes (Death)
  Sender: FDA-Public Use
  Company Number: None

PATIENT
  Age: 74 Year
  Weight: 75 kg

DRUGS (2)
  1. NOVOSEVEN [Suspect]
  2. NOVO NORDISK [Concomitant]

REACTIONS (2)
  - CONDITION AGGRAVATED [None]
  - POST PROCEDURAL HAEMORRHAGE [None]
